FAERS Safety Report 4989803-2 (Version None)
Quarter: 2006Q2

REPORT INFORMATION
  Report Type: 
  Country: None (occurrence: None)
  Receive Date: 20060501
  Receipt Date: 20060420
  Transmission Date: 20061013
  Serious: Yes (Hospitalization)
  Sender: FDA-Public Use
  Company Number: 2006-03-2011

PATIENT
  Age: 81 Year
  Sex: Male

DRUGS (10)
  1. CLARITIN [Suspect]
     Dosage: 10 MG QD ORAL
     Route: 048
     Dates: end: 20060201
  2. PRAVASTATIN [Suspect]
     Dosage: 40 MG QD ORAL
     Route: 048
  3. CALCIUM CARBONATE ORAL SUSPENSION [Suspect]
     Dosage: 1.54 G QD ORAL
     Route: 048
  4. SPECIAFOLDINE TABLETS [Suspect]
     Dosage: 5 MG QD ORAL
     Route: 048
     Dates: end: 20060208
  5. LASIX [Suspect]
     Dosage: 500MG BID ORAL
     Route: 048
  6. OMEPRAZOLE [Suspect]
     Dosage: 10 MG QD ORAL
     Route: 048
     Dates: end: 20060201
  7. VENOFER (FERRIC HYDROXIDE SACCHAROSE) [Concomitant]
  8. NEORECORMON (EPOETINE BETA) [Concomitant]
  9. 1-ALPHA-HYDROXYCHOLECALCIFEROL) [Concomitant]
  10. SERESTA [Concomitant]

REACTIONS (1)
  - THROMBOCYTOPENIA [None]
